FAERS Safety Report 6730847-8 (Version None)
Quarter: 2010Q2

REPORT INFORMATION
  Report Type: 
  Country: None (occurrence: None)
  Receive Date: 20100518
  Receipt Date: 20100504
  Transmission Date: 20101027
  Serious: Yes (Other)
  Sender: FDA-Public Use
  Company Number: PHHY2010US23642

PATIENT
  Sex: Male
  Weight: 79 kg

DRUGS (2)
  1. FOCALIN [Suspect]
     Indication: ATTENTION DEFICIT/HYPERACTIVITY DISORDER
     Dosage: 5 MG, QAM
     Dates: start: 20100408
  2. CLONIDINE [Suspect]
     Indication: TOURETTE'S DISORDER
     Dosage: 0.1 MG, QD

REACTIONS (13)
  - ARTHRALGIA [None]
  - BONE PAIN [None]
  - CHEST PAIN [None]
  - ENURESIS [None]
  - FATIGUE [None]
  - HEADACHE [None]
  - LIMB DISCOMFORT [None]
  - LYME DISEASE [None]
  - PERIPHERAL COLDNESS [None]
  - PYREXIA [None]
  - SKIN DISCOLOURATION [None]
  - URINARY RETENTION [None]
  - URTICARIA [None]
